FAERS Safety Report 7449612-1 (Version None)
Quarter: 2011Q2

REPORT INFORMATION
  Report Type: 
  Country: None (occurrence: None)
  Receive Date: 20110502
  Receipt Date: 20110425
  Transmission Date: 20111010
  Serious: Yes (Other)
  Sender: FDA-Public Use
  Company Number: US-BAYER-2011-035212

PATIENT
  Age: 35 Year
  Sex: Female

DRUGS (4)
  1. ALEVE (CAPLET) [Suspect]
     Indication: HEADACHE
     Dosage: 2 DF, UNK
  2. REBIF [Suspect]
     Indication: MULTIPLE SCLEROSIS
     Dosage: 22 ?G, TIW
     Route: 058
     Dates: start: 20100319
  3. TYLENOL (CAPLET) [Concomitant]
     Indication: PREMEDICATION
     Dosage: UNK
  4. ALEVE (CAPLET) [Suspect]
     Dosage: 1 DF, UNK

REACTIONS (7)
  - MALAISE [None]
  - FATIGUE [None]
  - ABDOMINAL DISCOMFORT [None]
  - GASTROINTESTINAL HAEMORRHAGE [None]
  - INJECTION SITE PAIN [None]
  - HEADACHE [None]
  - INJECTION SITE ERYTHEMA [None]
